FAERS Safety Report 8092009-4 (Version None)
Quarter: 2011Q4

REPORT INFORMATION
  Report Type: 
  Country: None (occurrence: None)
  Receive Date: 20111221
  Receipt Date: 20110519
  Transmission Date: 20120403
  Serious: Yes (Other)
  Sender: FDA-Public Use
  Company Number: PHHY2011US43588

PATIENT
  Age: 73 Year
  Sex: Male
  Weight: 78.9 kg

DRUGS (1)
  1. EXJADE [Suspect]
     Indication: MYELODYSPLASTIC SYNDROME
     Dosage: 1500 MG, DAILY, ORAL
     Route: 048
     Dates: end: 20110516

REACTIONS (1)
  - BLOOD CREATININE INCREASED [None]
